FAERS Safety Report 8672708 (Version 2)
Quarter: 2012Q4

REPORT INFORMATION
  Report Type: 
  Country: DK (occurrence: DK)
  Receive Date: 20120719
  Receipt Date: 20120914
  Transmission Date: 20130627
  Serious: Yes (Death)
  Sender: FDA-Public Use
  Company Number: DK-FRI-1000037140

PATIENT
  Age: 18 Year
  Sex: Male

DRUGS (2)
  1. CITALOPRAM [Suspect]
     Indication: ANXIETY
     Dosage: 20 mg
     Route: 048
     Dates: start: 20120521
  2. IMOGAS [Concomitant]

REACTIONS (1)
  - Completed suicide [Fatal]
